FAERS Safety Report 18821592 (Version 2)
Quarter: 2021Q1

REPORT INFORMATION
  Report Type: Report from Study
  Country: IT (occurrence: IT)
  Receive Date: 20210202
  Receipt Date: 20210203
  Transmission Date: 20210419
  Serious: Yes (Hospitalization)
  Sender: FDA-Public Use
  Company Number: IT-ROCHE-2761033

PATIENT
  Age: 74 Year
  Sex: Female
  Weight: 63 kg

DRUGS (3)
  1. ATEZOLIZUMAB. [Suspect]
     Active Substance: ATEZOLIZUMAB
     Indication: CHRONIC LYMPHOCYTIC LEUKAEMIA TRANSFORMATION
     Dosage: ON 12/JAN/2021, SHE RECEIVED THE MOST RECENT DOSE OF ATEZOLIZUMAB PRIRO TO SAE.
     Route: 042
     Dates: start: 20200929
  2. VENETOCLAX. [Suspect]
     Active Substance: VENETOCLAX
     Indication: CHRONIC LYMPHOCYTIC LEUKAEMIA TRANSFORMATION
     Dosage: ON 24/JAN/2021, SHE RECEIVED THE MOST RECENT DOSE OF VENETOCLAX PRIOR TO SAE.
     Route: 048
     Dates: start: 20201013
  3. OBINUTUZUMAB. [Suspect]
     Active Substance: OBINUTUZUMAB
     Indication: CHRONIC LYMPHOCYTIC LEUKAEMIA TRANSFORMATION
     Dosage: ON 12/JAN/2021, SHE RECEIVED THE MOST RECENT DOSE OF OBINUTUZUMAB PRIOR TO SAE.
     Route: 042
     Dates: start: 20200929

REACTIONS (1)
  - Febrile neutropenia [Recovered/Resolved]

NARRATIVE: CASE EVENT DATE: 20210124
